FAERS Safety Report 4291436-0 (Version None)
Quarter: 2004Q1

REPORT INFORMATION
  Report Type: 
  Country: None (occurrence: None)
  Receive Date: 20040211
  Receipt Date: 20040202
  Transmission Date: 20041129
  Serious: Yes (Other)
  Sender: FDA-Public Use
  Company Number: PHFR2004GB00888

PATIENT
  Age: 52 Year
  Sex: Female

DRUGS (5)
  1. DICLOFENAC [Suspect]
     Indication: GOUT
     Dosage: 50 MG/DAY
     Route: 048
     Dates: start: 20040110
  2. ALLOPURINOL [Concomitant]
     Indication: GOUT
     Route: 048
  3. CO-AMILOFRUSE [Concomitant]
     Indication: HYPERTENSION
     Route: 048
  4. METOPROLOL [Concomitant]
     Indication: HYPERTENSION
     Route: 048
  5. ADALAT [Concomitant]
     Indication: HYPERTENSION
     Route: 048

REACTIONS (5)
  - BLOOD PRESSURE DECREASED [None]
  - CHEST DISCOMFORT [None]
  - CIRCULATORY COLLAPSE [None]
  - HYPOTENSION [None]
  - RASH [None]
